FAERS Safety Report 11192762 (Version 1)
Quarter: 2015Q2

REPORT INFORMATION
  Report Type: Spontaneous
  Country: US (occurrence: None)
  Receive Date: 20150615
  Receipt Date: 20150615
  Transmission Date: 20150821
  Serious: Yes (Hospitalization)
  Sender: FDA-Public Use
  Company Number: None

PATIENT
  Age: 53 Year
  Sex: Male
  Weight: 66.6 kg

DRUGS (2)
  1. TAXOTERE [Suspect]
     Active Substance: DOCETAXEL
     Dates: end: 20150520
  2. ERBITUX [Suspect]
     Active Substance: CETUXIMAB
     Indication: SKIN INFECTION
     Dates: end: 20150520

REACTIONS (10)
  - Pruritus [None]
  - Pyrexia [None]
  - Radiation skin injury [None]
  - Superinfection [None]
  - Eye irritation [None]
  - Wound infection staphylococcal [None]
  - Drug eruption [None]
  - Rash maculo-papular [None]
  - Pleural effusion [None]
  - Cellulitis [None]

NARRATIVE: CASE EVENT DATE: 20150526
